FAERS Safety Report 9219477 (Version 1)
Quarter: 2013Q2

REPORT INFORMATION
  Report Type: Spontaneous
  Country: AU (occurrence: AU)
  Receive Date: 20130409
  Receipt Date: 20130409
  Transmission Date: 20140414
  Serious: Yes (Hospitalization)
  Sender: FDA-Public Use
  Company Number: AU-BRISTOL-MYERS SQUIBB COMPANY-18734459

PATIENT
  Sex: Female

DRUGS (2)
  1. ONGLYZA TABS [Suspect]
  2. INSULIN [Suspect]

REACTIONS (1)
  - Myocardial infarction [Unknown]
